APPROVED DRUG PRODUCT: QUELICIN PRESERVATIVE FREE
Active Ingredient: SUCCINYLCHOLINE CHLORIDE
Strength: 100MG/ML **Federal Register determination that product was not discontinued or withdrawn for safety or effectiveness reasons**
Dosage Form/Route: INJECTABLE;INJECTION
Application: N008845 | Product #004
Applicant: HOSPIRA INC
Approved: Approved Prior to Jan 1, 1982 | RLD: Yes | RS: No | Type: DISCN